FAERS Safety Report 21891947 (Version 1)
Quarter: 2023Q1

REPORT INFORMATION
  Report Type: Spontaneous
  Country: BE (occurrence: None)
  Receive Date: 20230120
  Receipt Date: 20230120
  Transmission Date: 20230418
  Serious: Yes (Disabling)
  Sender: FDA-Public Use
  Company Number: 2023A009033

PATIENT
  Age: 27 Year
  Sex: Female
  Weight: 63 kg

DRUGS (9)
  1. TAGRISSO [Suspect]
     Active Substance: OSIMERTINIB
     Indication: EGFR gene mutation
     Dosage: ONCE A DAY 1 TABLET NO TIME DATE, TREATMENT STILL ONGOING.
     Route: 048
     Dates: start: 20211020
  2. ALIZAPRIDE HYDROCHLORIDE [Concomitant]
     Active Substance: ALIZAPRIDE HYDROCHLORIDE
     Dosage: LITICAN 0-0-1-0
  3. BROMAZEPAM [Concomitant]
     Active Substance: BROMAZEPAM
     Dosage: BROMAZEPAM 6MG 0-0-0-1/2
  4. SIMVASTATIN [Concomitant]
     Active Substance: SIMVASTATIN
     Dosage: SIMVASTATINE 20MG 0-0-1-0
  5. BISOPROLOL [Concomitant]
     Active Substance: BISOPROLOL
     Dosage: BISOPROLOL 2.5MG 1-0-0-0
  6. METFORMIN HYDROCHLORIDE [Concomitant]
     Active Substance: METFORMIN HYDROCHLORIDE
     Dosage: METFORMAX 850MG 1-1-1-0
  7. LEVOTHYROXINE [Concomitant]
     Active Substance: LEVOTHYROXINE
     Dosage: L-THYROXINE 25MCG 1D/2
  8. PANTOMED [Concomitant]
     Dosage: PANTOMED 40MG 1-0-0-0
  9. LEVOTHYROXINE [Concomitant]
     Active Substance: LEVOTHYROXINE
     Dosage: L-THYROXINE 50MCG 1D/2

REACTIONS (1)
  - Dry mouth [Not Recovered/Not Resolved]
